FAERS Safety Report 7514874-9 (Version None)
Quarter: 2011Q2

REPORT INFORMATION
  Report Type: 
  Country: None (occurrence: None)
  Receive Date: 20110601
  Receipt Date: 20110520
  Transmission Date: 20111010
  Serious: Yes (Hospitalization)
  Sender: FDA-Public Use
  Company Number: US-JNJFOC-20110509993

PATIENT
  Sex: Female

DRUGS (5)
  1. DURAGESIC-100 [Suspect]
     Indication: PAIN
     Dosage: NDC: 50458-094-05
     Route: 062
  2. FENTANYL-100 [Suspect]
     Indication: PAIN
     Route: 062
  3. DURAGESIC-100 [Suspect]
     Dosage: NDC: 50458-092-05
     Route: 062
  4. DURAGESIC-100 [Suspect]
     Route: 062
  5. EFFEXOR [Concomitant]
     Indication: DEPRESSION
     Route: 048

REACTIONS (4)
  - GASTROOESOPHAGEAL REFLUX DISEASE [None]
  - MYOCARDIAL INFARCTION [None]
  - HYPERSENSITIVITY [None]
  - WRONG TECHNIQUE IN DRUG USAGE PROCESS [None]
